FAERS Safety Report 4543913-2 (Version None)
Quarter: 2005Q1

REPORT INFORMATION
  Report Type: 
  Country: None (occurrence: None)
  Receive Date: 20050103
  Receipt Date: 20040604
  Transmission Date: 20050727
  Serious: Yes (Other)
  Sender: FDA-Public Use
  Company Number: GXKR2004BR00511

PATIENT
  Age: 28 Year
  Sex: Female
  Weight: 62 kg

DRUGS (1)
  1. ATENOLOL [Suspect]
     Indication: HYPOTENSION
     Dosage: 50 MG, QHS, ORAL
     Route: 048
     Dates: start: 20040521, end: 20040522

REACTIONS (6)
  - CONVULSION [None]
  - FATIGUE [None]
  - NERVOUSNESS [None]
  - PHARMACEUTICAL PRODUCT COMPLAINT [None]
  - SYNCOPE [None]
  - TREATMENT NONCOMPLIANCE [None]
